FAERS Safety Report 9409591 (Version 2)
Quarter: 2013Q3

REPORT INFORMATION
  Report Type: Report from Study
  Country: TH (occurrence: TH)
  Receive Date: 20130719
  Receipt Date: 20130912
  Transmission Date: 20140515
  Serious: Yes (Death)
  Sender: FDA-Public Use
  Company Number: PHHY2013TH076462

PATIENT
  Age: 20 Year
  Sex: Male

DRUGS (1)
  1. AMN107 [Suspect]
     Indication: BLAST CRISIS IN MYELOGENOUS LEUKAEMIA
     Dosage: 400 MG, BID
     Route: 048
     Dates: start: 20130304, end: 20130430

REACTIONS (1)
  - Death [Fatal]
